FAERS Safety Report 7704691 (Version 2)
Quarter: 2014Q3

REPORT INFORMATION
  Report Type: Spontaneous
  Country: US (occurrence: US)
  Receive Date: 20101213
  Receipt Date: 20140828
  Transmission Date: 20150326
  Serious: Yes (Hospitalization, Other)
  Sender: FDA-Public Use
  Company Number: US-ROCHE-727467

PATIENT
  Age: 31 Year
  Sex: Male
  Weight: 88.5 kg

DRUGS (1)
  1. ACCUTANE [Suspect]
     Active Substance: ISOTRETINOIN
     Indication: ACNE
     Route: 065
     Dates: start: 198808, end: 198809

REACTIONS (5)
  - Perirectal abscess [Recovering/Resolving]
  - Gastrointestinal injury [Unknown]
  - Colitis ulcerative [Unknown]
  - Anal fistula [Unknown]
  - Inflammatory bowel disease [Unknown]

NARRATIVE: CASE EVENT DATE: 198910
